FAERS Safety Report 5647929-4 (Version None)
Quarter: 2008Q1

REPORT INFORMATION
  Report Type: 
  Country: None (occurrence: None)
  Receive Date: 20080229
  Receipt Date: 20080225
  Transmission Date: 20080703
  Serious: Yes (Hospitalization, Disabling)
  Sender: FDA-Public Use
  Company Number: CERZ-10615

PATIENT
  Age: 59 Year
  Sex: Male
  Weight: 59 kg

DRUGS (6)
  1. CEREZYME [Suspect]
     Indication: GAUCHER'S DISEASE
     Dosage: 4000 U, Q2W, INTRAVENOUS
     Route: 042
     Dates: start: 19980211
  2. DIOVAN [Concomitant]
  3. CARDIZEM [Concomitant]
  4. PROCRIT [Concomitant]
  5. VITAMIN B12 [Concomitant]
  6. CATAPRES-TTS-1 [Concomitant]

REACTIONS (5)
  - HAEMODIALYSIS [None]
  - HAEMOGLOBIN DECREASED [None]
  - RENAL FAILURE CHRONIC [None]
  - RENAL TRANSPLANT [None]
  - SPLENIC ARTERY ANEURYSM [None]
